FAERS Safety Report 5244373-9 (Version None)
Quarter: 2007Q1

REPORT INFORMATION
  Report Type: 
  Country: None (occurrence: None)
  Receive Date: 20070222
  Receipt Date: 20070219
  Transmission Date: 20070707
  Serious: Yes (Disabling)
  Sender: FDA-Public Use
  Company Number: GB-PFIZER INC-2007012719

PATIENT
  Age: 70 Year

DRUGS (4)
  1. CETIRIZINE HCL [Suspect]
     Indication: HYPERSENSITIVITY
     Dosage: DAILY DOSE:10MG
     Route: 048
     Dates: start: 20061201, end: 20070131
  2. ATORVASTATIN [Concomitant]
     Dosage: DAILY DOSE:40MG
     Route: 048
  3. ENALAPRIL MALEATE [Concomitant]
     Dosage: DAILY DOSE:10MG
  4. LEVOTHYROXINE SODIUM [Concomitant]
     Dosage: DAILY DOSE:150MG
     Route: 048

REACTIONS (2)
  - ARRHYTHMIA [None]
  - ELECTROCARDIOGRAM QT PROLONGED [None]
